FAERS Safety Report 8063680-8 (Version None)
Quarter: 2012Q1

REPORT INFORMATION
  Report Type: 
  Country: None (occurrence: None)
  Receive Date: 20120123
  Receipt Date: 20120113
  Transmission Date: 20120608
  Serious: Yes (Life-Threatening, Other)
  Sender: FDA-Public Use
  Company Number: GB-TEVA-317256ISR

PATIENT
  Age: 55 Year
  Sex: Female
  Weight: 80 kg

DRUGS (4)
  1. PROPOFOL [Concomitant]
     Indication: ANAESTHESIA
     Dosage: GIVEN BY BOLUS FOR INDUCTION OF ANAESTHESIA
     Route: 042
     Dates: start: 20110901, end: 20110901
  2. AMOXICILLIN AND CLAVULANATE POTASSIUM [Suspect]
     Indication: PROPHYLAXIS
     Dosage: GIVEN VIA SLOW BOLUS
     Route: 042
     Dates: start: 20110901, end: 20110901
  3. FENTANYL [Concomitant]
     Indication: ANAESTHESIA
     Dosage: GIVEN BY BOLUS FOR INDUCTION OF ANAESTHESIA
     Route: 042
     Dates: start: 20110901, end: 20110901
  4. CISATRACURIUM BESYLATE [Concomitant]
     Indication: ANAESTHESIA
     Dosage: GIVEN BY BOLUS FOR INDUCTION OF ANAESTHESIA
     Route: 042
     Dates: start: 20110901, end: 20110901

REACTIONS (2)
  - RASH [None]
  - HYPOTENSION [None]
